FAERS Safety Report 8825646 (Version 2)
Quarter: 2012Q4

REPORT INFORMATION
  Report Type: 
  Country: US (occurrence: US)
  Receive Date: 20121004
  Receipt Date: 20121016
  Transmission Date: 20130627
  Serious: No
  Sender: FDA-Public Use
  Company Number: US-VERTEX PHARMACEUTICAL INC.-2012-021340

PATIENT
  Sex: Female

DRUGS (9)
  1. INCIVEK [Suspect]
     Indication: HEPATITIS C
     Dosage: 750 mg, tid
     Route: 048
     Dates: start: 20120730, end: 20120912
  2. RIBAVIRIN [Suspect]
     Indication: HEPATITIS C
     Dosage: 600 mg, bid
     Route: 048
     Dates: start: 20120730
  3. PEGASYS [Suspect]
     Indication: HEPATITIS C
     Dosage: 180 ?g, UNK
     Route: 058
     Dates: start: 20120730
  4. CLARITIN                           /00413701/ [Concomitant]
     Dosage: 10 mg, UNK
  5. ACTONEL [Concomitant]
     Dosage: 35 mg, UNK
  6. HYDROCHLOROTHIAZIDE [Concomitant]
  7. ADVAIR [Concomitant]
  8. SERTRALINE [Concomitant]
  9. TRAZODONE [Concomitant]
     Dosage: 50 mg, UNK

REACTIONS (2)
  - Rash generalised [Not Recovered/Not Resolved]
  - Skin exfoliation [Unknown]
